FAERS Safety Report 5073511-6 (Version None)
Quarter: 2006Q3

REPORT INFORMATION
  Report Type: 
  Country: None (occurrence: None)
  Receive Date: 20060717
  Receipt Date: 20051128
  Transmission Date: 20061208
  Serious: No
  Sender: FDA-Public Use
  Company Number: 2005002290

PATIENT
  Sex: Male

DRUGS (1)
  1. TRACEVA (TABLET) (ERLOTINIB) [Suspect]
     Indication: NEOPLASM MALIGNANT
     Dosage: 150 MG (QD), ORAL
     Route: 048
     Dates: start: 20051104, end: 20051121

REACTIONS (8)
  - ABDOMINAL DISTENSION [None]
  - AGEUSIA [None]
  - ANOREXIA [None]
  - ASTHENIA [None]
  - DRY MOUTH [None]
  - DYSPNOEA [None]
  - MALIGNANT NEOPLASM PROGRESSION [None]
  - RASH [None]
